FAERS Safety Report 9871504 (Version 3)
Quarter: 2014Q1

REPORT INFORMATION
  Report Type: Report from Study
  Country: US (occurrence: US)
  Receive Date: 20140205
  Receipt Date: 20140213
  Transmission Date: 20141002
  Serious: Yes (Hospitalization)
  Sender: FDA-Public Use
  Company Number: US-JNJFOC-20130713225

PATIENT
  Age: 81 Year
  Sex: Female
  Weight: 49.4 kg

DRUGS (24)
  1. IBRUTINIB [Suspect]
     Indication: MANTLE CELL LYMPHOMA
     Route: 048
     Dates: start: 20130720
  2. IBRUTINIB [Suspect]
     Indication: MANTLE CELL LYMPHOMA
     Dosage: NUMBER OF DOSES RECEIVED: CYCLE 28
     Route: 048
     Dates: start: 20110623
  3. IBRUTINIB [Suspect]
     Indication: MANTLE CELL LYMPHOMA
     Dosage: NUMBER OF DOSES RECEIVED: CYCLE 28
     Route: 048
     Dates: start: 20120914, end: 20130717
  4. ALPRAZOLAM [Concomitant]
     Indication: ANXIETY
     Route: 048
     Dates: start: 20090812
  5. CALTRATE D [Concomitant]
     Indication: OSTEOPOROSIS
     Dosage: 2 TABLETS
     Route: 048
     Dates: start: 20090808
  6. CANASA [Concomitant]
     Indication: COLITIS ULCERATIVE
     Dates: start: 20100323
  7. LEVOTHYROXINE [Concomitant]
     Indication: HYPOTHYROIDISM
     Route: 048
     Dates: start: 20090730
  8. MULTIVITAMINS [Concomitant]
     Indication: NUTRITIONAL SUPPLEMENTATION
     Dosage: 1 TABLET
     Route: 048
     Dates: start: 20090808
  9. NEXIUM [Concomitant]
     Indication: GASTROOESOPHAGEAL REFLUX DISEASE
     Route: 048
     Dates: start: 20091231
  10. ONDANSETRON [Concomitant]
     Indication: VOMITING
     Route: 048
     Dates: start: 20090812
  11. ONDANSETRON [Concomitant]
     Indication: NAUSEA
     Route: 048
     Dates: start: 20090812
  12. REFRESH TEARS [Concomitant]
     Indication: DRY EYE
     Dosage: 1 DROP
     Route: 061
     Dates: start: 20090730
  13. SINGULAIR [Concomitant]
     Indication: SEASONAL ALLERGY
     Dosage: 10 TABLETS
     Route: 048
     Dates: start: 20091231
  14. VIVELLE [Concomitant]
     Indication: HORMONE REPLACEMENT THERAPY
     Route: 061
     Dates: start: 20090730
  15. ZYRTEC [Concomitant]
     Indication: SEASONAL ALLERGY
     Route: 048
     Dates: start: 20091231
  16. AUGMENTIN [Concomitant]
     Indication: URINARY TRACT INFECTION
     Dates: start: 20111110
  17. CARAFATE [Concomitant]
     Indication: MUCOSAL INFLAMMATION
     Dates: start: 20120105
  18. NASONEX [Concomitant]
     Indication: SEASONAL ALLERGY
     Dosage: 1 SPRAY
  19. MEDIHONEY ANTIBACTERIAL HONEY [Concomitant]
     Indication: WOUND
     Dosage: 1 APPLICATION
     Route: 061
     Dates: start: 20120510
  20. ROBAXIN [Concomitant]
     Indication: MYALGIA
     Route: 048
     Dates: start: 20130714
  21. TUMS [Concomitant]
     Indication: NUTRITIONAL SUPPLEMENTATION
     Dosage: 1 TABLET
     Route: 048
     Dates: start: 20110714
  22. VITAMIN B12 [Concomitant]
     Indication: NUTRITIONAL SUPPLEMENTATION
     Route: 048
     Dates: start: 20120229
  23. VITAMIN D3 [Concomitant]
     Indication: NUTRITIONAL SUPPLEMENTATION
     Route: 048
     Dates: start: 20120301
  24. TYLENOL [Concomitant]
     Indication: MYALGIA
     Dosage: 0.5 TABLET
     Route: 048
     Dates: start: 20120417

REACTIONS (2)
  - Fall [Recovered/Resolved]
  - Traumatic haematoma [Recovered/Resolved]
